FAERS Safety Report 9605108 (Version 1)
Quarter: 2013Q4

REPORT INFORMATION
  Report Type: Spontaneous
  Country: GB (occurrence: GB)
  Receive Date: 20131008
  Receipt Date: 20131008
  Transmission Date: 20140711
  Serious: Yes (Hospitalization)
  Sender: FDA-Public Use
  Company Number: GB-ASTRAZENECA-2013SE72802

PATIENT
  Age: 49 Year
  Sex: Male
  Weight: 76.2 kg

DRUGS (9)
  1. TICAGRELOR [Suspect]
     Route: 048
     Dates: start: 20130119, end: 20130701
  2. ASPIRIN [Concomitant]
     Dates: start: 20130120
  3. ATORVASTATIN [Concomitant]
     Dates: start: 20130120
  4. BISOPROLOL [Concomitant]
     Dates: start: 20130120
  5. CODEINE PHOSPHATE [Concomitant]
  6. COLCHICINE [Concomitant]
  7. LANSOPRAZOLE [Concomitant]
     Dates: start: 20130120
  8. OMEPRAZOLE [Concomitant]
     Dates: start: 20130120
  9. RAMIPRIL [Concomitant]
     Dates: start: 20130120

REACTIONS (7)
  - Condition aggravated [Unknown]
  - Gait disturbance [Unknown]
  - Discomfort [Unknown]
  - Pain in extremity [Recovering/Resolving]
  - Osteochondrosis [Unknown]
  - Gout [Unknown]
  - Local swelling [Recovered/Resolved]
